FAERS Safety Report 23059659 (Version 2)
Quarter: 2023Q4

REPORT INFORMATION
  Report Type: Spontaneous
  Country: JP (occurrence: JP)
  Receive Date: 20231012
  Receipt Date: 20231106
  Transmission Date: 20240110
  Serious: Yes (Life-Threatening, Other)
  Sender: FDA-Public Use
  Company Number: JP-TAKEDA-2023TJP013245

PATIENT

DRUGS (2)
  1. ZEJULA [Suspect]
     Active Substance: NIRAPARIB
     Indication: Ovarian cancer
     Dosage: 200 MILLIGRAM, QD
     Route: 048
     Dates: start: 20230215, end: 20230331
  2. ZEJULA [Suspect]
     Active Substance: NIRAPARIB
     Dosage: 100 MILLIGRAM
     Route: 048
     Dates: start: 20230418, end: 20230601

REACTIONS (3)
  - Anaemia [Not Recovered/Not Resolved]
  - Ovarian cancer [Not Recovered/Not Resolved]
  - Malaise [Recovered/Resolved]

NARRATIVE: CASE EVENT DATE: 20230322
